FAERS Safety Report 9153680 (Version 3)
Quarter: 2013Q2

REPORT INFORMATION
  Report Type: Spontaneous
  Country: IR (occurrence: IR)
  Receive Date: 20130311
  Receipt Date: 20130424
  Transmission Date: 20140414
  Serious: Yes (Life-Threatening, Hospitalization, Other)
  Sender: FDA-Public Use
  Company Number: IR-MPIJNJ-2013-01790

PATIENT
  Sex: 0

DRUGS (5)
  1. VELCADE [Suspect]
     Indication: PLASMA CELL MYELOMA
     Dosage: 3 MG, UNK
     Route: 058
     Dates: start: 20130130, end: 20130130
  2. DEXAMETHASONE [Suspect]
     Indication: PRODUCT USED FOR UNKNOWN INDICATION
     Dosage: 0.5 MG, UNK
     Route: 065
     Dates: end: 20130209
  3. THALIDOMIDE [Concomitant]
     Dosage: 100 MG, UNK
     Route: 048
     Dates: start: 20130130
  4. ACYCLOVIR                          /00587301/ [Concomitant]
     Dosage: 200 MG, UNK
     Route: 048
     Dates: start: 20130130
  5. COTRIMOXAZOLE [Concomitant]
     Dosage: UNK
     Dates: start: 20130130

REACTIONS (6)
  - Atrial fibrillation [Recovered/Resolved]
  - Hyperthyroidism [Not Recovered/Not Resolved]
  - Thrombocytopenia [Recovered/Resolved]
  - Pulmonary oedema [Recovered/Resolved]
  - Pyrexia [Recovered/Resolved]
  - Blood creatinine increased [Recovered/Resolved]
